FAERS Safety Report 15340909 (Version 1)
Quarter: 2018Q3

REPORT INFORMATION
  Report Type: Spontaneous
  Country: US (occurrence: US)
  Receive Date: 20180831
  Receipt Date: 20180831
  Transmission Date: 20181010
  Serious: No
  Sender: FDA-Public Use
  Company Number: US-SA-2018SA242308

PATIENT
  Age: 69 Year
  Sex: Female
  Weight: 73.47 kg

DRUGS (25)
  1. FABRAZYME [Suspect]
     Active Substance: AGALSIDASE BETA
     Dosage: 75 UNK
     Route: 041
  2. NORMAL SALINE [Concomitant]
     Active Substance: SODIUM CHLORIDE
     Dosage: 0.9 % IVAS DIRECTED
     Route: 042
     Dates: start: 20171005
  3. ISOSORBIDE MONONITE [Concomitant]
     Dosage: 60 MG, QD DAILY
     Route: 048
     Dates: start: 20171005
  4. AMIODARONE [Concomitant]
     Active Substance: AMIODARONE
     Dosage: 1 DF, QD
     Route: 048
     Dates: start: 20170927
  5. DIPHENHYDRAMINE. [Concomitant]
     Active Substance: DIPHENHYDRAMINE
     Indication: ANAPHYLACTIC REACTION
     Dosage: 50 MG IV AS NEEDED
     Route: 042
     Dates: start: 20171005
  6. EPINEPHRINE. [Concomitant]
     Active Substance: EPINEPHRINE
     Indication: ANAPHYLACTIC REACTION
     Dosage: 0.3 MG IM AS NEEDED
     Route: 030
     Dates: start: 20171005
  7. VITAMIN B12 [Concomitant]
     Active Substance: CYANOCOBALAMIN
     Dosage: 1 DF, QD
     Route: 048
     Dates: start: 20171005
  8. PROTONIX [OMEPRAZOLE] [Concomitant]
     Dosage: 1 DF, QD
     Route: 048
     Dates: start: 20170927
  9. INDAPAMIDE. [Concomitant]
     Active Substance: INDAPAMIDE
     Dosage: 1 DF, QD
     Route: 048
     Dates: start: 20170927
  10. ACETAMINOPHEN. [Concomitant]
     Active Substance: ACETAMINOPHEN
     Indication: PREMEDICATION
     Dosage: 500 MG
     Route: 048
     Dates: start: 20171005
  11. STERILE WATER [Concomitant]
     Active Substance: WATER
     Dosage: 1 DOSE IVAS DIRECTED
     Route: 042
     Dates: start: 20171005
  12. FABRAZYME [Suspect]
     Active Substance: AGALSIDASE BETA
     Indication: FABRY^S DISEASE
     Dosage: 75 MG, QOW
     Route: 041
  13. DILAUDID [Concomitant]
     Active Substance: HYDROMORPHONE HYDROCHLORIDE
     Dosage: 1 TABLET BY MOUTH EVERY 3?4 HOURS
     Route: 048
     Dates: start: 20180813
  14. DULCOLAX (BISACODYL) [Concomitant]
     Active Substance: BISACODYL
     Dosage: 1 TABLET BY MOUTH AS NEEED
     Route: 048
     Dates: start: 20180813
  15. SODIUM CHLORIDE. [Concomitant]
     Active Substance: SODIUM CHLORIDE
     Dosage: 0.9 % IV AS DIRECTED
     Route: 042
     Dates: start: 20171005
  16. NORVASC [Concomitant]
     Active Substance: AMLODIPINE BESYLATE
     Dosage: 1 DF, QD
     Route: 048
     Dates: start: 20170927
  17. SYSTANE (HYPROMELLOSE 2910 (4000 MPA.S)) [Concomitant]
     Active Substance: HYPROMELLOSE 2910 (4000 MPA.S)
     Dosage: 1 GTT DROPS, QID
     Dates: start: 20180712
  18. KLOR?CON [Concomitant]
     Active Substance: POTASSIUM CHLORIDE
     Dosage: 1 DF, QD
     Route: 048
     Dates: start: 20180221
  19. SOLU?MEDROL [Concomitant]
     Active Substance: METHYLPREDNISOLONE SODIUM SUCCINATE
     Indication: ANAPHYLACTIC REACTION
     Dosage: 125 MG IV AS NEEDED
     Route: 042
     Dates: start: 20171005
  20. ESTRADIOL. [Concomitant]
     Active Substance: ESTRADIOL
     Dosage: 1 DF, QD
     Route: 048
  21. NEURONTIN [Concomitant]
     Active Substance: GABAPENTIN
     Dosage: 1 DF, TID
     Route: 048
     Dates: start: 20180823
  22. ASPIRIN [ACETYLSALICYLIC ACID] [Concomitant]
     Active Substance: ASPIRIN
     Dosage: 1 DF, QD
     Route: 048
     Dates: start: 20180726
  23. SHINGRIX [Concomitant]
     Active Substance: RECOMBINANT VARICELLA ZOSTER VIRUS (VZV) GLYCOPROTEIN E
     Dosage: 1 U, Q6M
     Dates: start: 20180517
  24. PRENATAL [ASCORBIC ACID;FERROUS FUMARATE;FOLIC ACID;RETINOL] [Concomitant]
     Dosage: 1 DF, QD
     Route: 048
     Dates: start: 20171005
  25. LISINOPRIL. [Concomitant]
     Active Substance: LISINOPRIL
     Dosage: 1 DF, QD
     Route: 048
     Dates: start: 20170927

REACTIONS (1)
  - Sciatica [Unknown]
